FAERS Safety Report 4578061-9 (Version None)
Quarter: 2005Q1

REPORT INFORMATION
  Report Type: 
  Country: None (occurrence: None)
  Receive Date: 20050209
  Receipt Date: 20050121
  Transmission Date: 20050727
  Serious: Yes (Life-Threatening, Hospitalization, Other)
  Sender: FDA-Public Use
  Company Number: DE_041214976

PATIENT
  Sex: Female
  Weight: 74 kg

DRUGS (7)
  1. GEMZAR [Suspect]
     Indication: BLADDER CANCER
     Dosage: 1000 MG/M2
     Dates: start: 20040805
  2. CISPLATIN [Concomitant]
  3. ZOFRAN [Concomitant]
  4. EMEND [Concomitant]
  5. DEXAMETHASONE [Concomitant]
  6. EPOETIN NOS [Concomitant]
  7. CORTICOSTEROID NOS [Concomitant]

REACTIONS (21)
  - ALCOHOLIC LIVER DISEASE [None]
  - CHOLECYSTITIS [None]
  - CHOLELITHIASIS [None]
  - CONVULSION [None]
  - CULTURE URINE POSITIVE [None]
  - DRUG TOXICITY [None]
  - ELECTROLYTE IMBALANCE [None]
  - ENTEROCOCCAL INFECTION [None]
  - ESCHERICHIA INFECTION [None]
  - GENERALISED OEDEMA [None]
  - HAEMATOTOXICITY [None]
  - HEPATIC FAILURE [None]
  - HEPATIC STEATOSIS [None]
  - LOSS OF CONSCIOUSNESS [None]
  - PANCYTOPENIA [None]
  - POST PROCEDURAL HAEMORRHAGE [None]
  - PSEUDOMONAS INFECTION [None]
  - RENAL FAILURE [None]
  - THROMBOPHLEBITIS [None]
  - URINARY TRACT INFECTION [None]
  - ZIEVE SYNDROME [None]
